FAERS Safety Report 25945610 (Version 1)
Quarter: 2025Q4

REPORT INFORMATION
  Report Type: Spontaneous
  Country: US (occurrence: US)
  Receive Date: 20251021
  Receipt Date: 20251021
  Transmission Date: 20260118
  Serious: No
  Sender: VERTEX
  Company Number: US-VERTEX PHARMACEUTICALS-2025-017128

PATIENT

DRUGS (4)
  1. JOURNAVX [Suspect]
     Active Substance: SUZETRIGINE
     Indication: Pain
     Dosage: FULL DOSE (UNSPECIFIED)
     Route: 048
  2. JOURNAVX [Suspect]
     Active Substance: SUZETRIGINE
     Dosage: 12.5MG
     Route: 048
  3. JOURNAVX [Suspect]
     Active Substance: SUZETRIGINE
     Dosage: 16.67MG
     Route: 048
  4. SINGULAIR [Concomitant]
     Active Substance: MONTELUKAST SODIUM

REACTIONS (1)
  - Acne cystic [Recovering/Resolving]
